FAERS Safety Report 14836023 (Version 1)
Quarter: 2018Q2

REPORT INFORMATION
  Report Type: Spontaneous
  Country: US (occurrence: US)
  Receive Date: 20180413
  Receipt Date: 20180413
  Transmission Date: 20180711
  Serious: No
  Sender: FDA-Public Use
  Company Number: None

PATIENT
  Sex: Female

DRUGS (2)
  1. ARTIFICIAL TEARS [Suspect]
     Active Substance: GLYCERIN\HYPROMELLOSES\POLYETHYLENE GLYCOL 400
  2. OASIS TEARS PLUS [Suspect]
     Active Substance: GLYCERIN

REACTIONS (1)
  - Drug ineffective [None]
